FAERS Safety Report 6148289-5 (Version None)
Quarter: 2009Q2

REPORT INFORMATION
  Report Type: 
  Country: None (occurrence: None)
  Receive Date: 20090408
  Receipt Date: 20090406
  Transmission Date: 20091009
  Serious: Yes (Other)
  Sender: FDA-Public Use
  Company Number: JP-BAYER-200812012BYL

PATIENT
  Age: 72 Year
  Sex: Male
  Weight: 81 kg

DRUGS (17)
  1. NEXAVAR [Suspect]
     Indication: RENAL CELL CARCINOMA STAGE I
     Dosage: TOTAL DAILY DOSE: 800 MG  UNIT DOSE: 200 MG
     Route: 048
     Dates: start: 20080723, end: 20080818
  2. ZANTAC [Concomitant]
     Route: 048
     Dates: start: 20080604
  3. LASIX [Concomitant]
     Dosage: TOTAL DAILY DOSE: 20 MG
     Route: 048
     Dates: start: 20080604
  4. LIVACT [Concomitant]
     Route: 048
     Dates: start: 20080604
  5. ALDACTONE [Concomitant]
     Dosage: TOTAL DAILY DOSE: 25 MG
     Route: 048
     Dates: start: 20080604
  6. POLARAMINE [Concomitant]
     Dosage: TOTAL DAILY DOSE: 2 MG
     Route: 048
     Dates: start: 20080604
  7. URSO 250 [Concomitant]
     Route: 048
     Dates: start: 20080604
  8. AMINOLEBAN EN [Concomitant]
     Dosage: TOTAL DAILY DOSE: 50 G
     Route: 048
     Dates: start: 20080604
  9. LACTULOSE [Concomitant]
     Dosage: UNIT DOSE: 60 %
     Route: 048
     Dates: start: 20080604
  10. HALCION [Concomitant]
     Dosage: TOTAL DAILY DOSE: 0.125 MG
     Route: 048
     Dates: start: 20080604
  11. NOVORAPID [Concomitant]
     Route: 058
     Dates: start: 20080604
  12. NOVOLIN 50R [Concomitant]
     Dosage: TOTAL DAILY DOSE: 20 U
     Route: 058
     Dates: start: 20080604
  13. SOLDEM 3A [Concomitant]
     Route: 041
     Dates: start: 20080729, end: 20080804
  14. HUMULIN R [Concomitant]
     Dosage: TOTAL DAILY DOSE: 4 U
     Route: 058
     Dates: start: 20080729, end: 20080804
  15. MORIHEPAMIN [Concomitant]
     Dosage: TOTAL DAILY DOSE: 500 ML
     Route: 041
     Dates: start: 20080802, end: 20080802
  16. TAURINE [Concomitant]
     Route: 048
     Dates: start: 20080811
  17. NADIC [Concomitant]
     Dosage: TOTAL DAILY DOSE: 30 MG
     Route: 048
     Dates: start: 20080819

REACTIONS (2)
  - BLOOD BILIRUBIN INCREASED [None]
  - HEPATIC ENCEPHALOPATHY [None]
